FAERS Safety Report 5375380-3 (Version None)
Quarter: 2007Q2

REPORT INFORMATION
  Report Type: 
  Country: None (occurrence: None)
  Receive Date: 20070622
  Receipt Date: 20060615
  Transmission Date: 20071010
  Serious: Yes (Hospitalization, Other)
  Sender: FDA-Public Use
  Company Number: 28256

PATIENT
  Age: 53 Year
  Sex: Female
  Weight: 66.2252 kg

DRUGS (5)
  1. PAMIDRONATE DISODIUM [Suspect]
     Indication: OSTEOPOROSIS
     Dosage: 30 MG/OVER3 HRS/IV
     Route: 042
     Dates: start: 20060504
  2. LEVOTHYROXINE SODIUM [Concomitant]
  3. ALBUTEROL PRN [Concomitant]
  4. TESTOSTERONE [Concomitant]
  5. OMEPRAZOLE [Concomitant]

REACTIONS (2)
  - ATRIAL FIBRILLATION [None]
  - TACHYCARDIA [None]
